FAERS Safety Report 10144567 (Version 1)
Quarter: 2014Q2

REPORT INFORMATION
  Report Type: Spontaneous
  Country: US (occurrence: US)
  Receive Date: 20140430
  Receipt Date: 20140430
  Transmission Date: 20141212
  Serious: Yes (Other)
  Sender: FDA-Public Use
  Company Number: US-SANOFI-AVENTIS-2013SA072901

PATIENT
  Sex: 0

DRUGS (2)
  1. LOVENOX [Suspect]
     Route: 065
  2. ASPIRIN [Suspect]
     Route: 065

REACTIONS (1)
  - Abdominal wall haematoma [Unknown]
